FAERS Safety Report 16901511 (Version 4)
Quarter: 2019Q4

REPORT INFORMATION
  Report Type: Spontaneous
  Country: FR (occurrence: FR)
  Receive Date: 20191009
  Receipt Date: 20191120
  Transmission Date: 20200122
  Serious: Yes (Hospitalization, Other)
  Sender: FDA-Public Use
  Company Number: FR-AUROBINDO-AUR-APL-2019-064631

PATIENT
  Age: 54 Year
  Sex: Male
  Weight: 100 kg

DRUGS (11)
  1. STELARA [Suspect]
     Active Substance: USTEKINUMAB
     Dosage: 90 MILLIGRAM, 12 WEEK
     Route: 058
     Dates: start: 20171110
  2. LOVENOX [Suspect]
     Active Substance: ENOXAPARIN SODIUM
     Indication: THROMBOSIS PROPHYLAXIS
     Dosage: 4000 INTERNATIONAL UNIT, ONCE A DAY (1-0-0)
     Route: 058
     Dates: start: 20190906
  3. PANTOPRAZOLE SODIUM. [Concomitant]
     Active Substance: PANTOPRAZOLE SODIUM
     Indication: PEPTIC ULCER
     Dosage: 20 MILLIGRAM, ONCE A DAY
     Route: 048
  4. SYMBICORT [Concomitant]
     Active Substance: BUDESONIDE\FORMOTEROL FUMARATE DIHYDRATE
     Indication: DYSPNOEA
     Dosage: 2 DOSAGE FORM, ONCE A DAY (1-0-1)
     Route: 055
  5. SKENAN [Suspect]
     Active Substance: MORPHINE SULFATE
     Indication: BACK PAIN
     Dosage: 60 MILLIGRAM, ONCE A DAY (1-0-1)
     Route: 048
     Dates: start: 20190805
  6. VENTOLINE [Concomitant]
     Active Substance: ALBUTEROL
     Indication: DYSPNOEA
     Dosage: 1 DOSAGE FORM AS NECESSARY (IF NEEDED MAX 6/DAY)
     Route: 055
  7. CORTANCYL [Concomitant]
     Active Substance: PREDNISONE
     Indication: BACK PAIN
     Dosage: 60 MILLIGRAM, ONCE A DAY
     Route: 048
  8. GABAPENTIN ARROW [Suspect]
     Active Substance: GABAPENTIN
     Indication: NEURALGIA
     Dosage: 400 MILLIGRAM, ONCE A DAY (1-1-2)
     Route: 048
     Dates: start: 20190821
  9. STELARA [Suspect]
     Active Substance: USTEKINUMAB
     Indication: PSORIASIS
     Dosage: 90 MILLIGRAM, 12 WEEK
     Route: 048
     Dates: start: 20171110
  10. ACTISKENAN [Suspect]
     Active Substance: MORPHINE SULFATE
     Indication: BACK PAIN
     Dosage: 10 MILLIGRAM (IF PAIN (MAX 6 / DAY) 1 AS NECESSARY)
     Route: 048
     Dates: start: 20190805
  11. RIVOTRIL [Suspect]
     Active Substance: CLONAZEPAM
     Indication: NEURALGIA
     Dosage: 15 GTT DROPS, ONCE A DAY (5 DROPS MORNING AND NOON, 10 IN THE EVENING)
     Route: 048
     Dates: start: 20190821

REACTIONS (2)
  - Bronchospasm [Recovered/Resolved]
  - Respiratory distress [Recovered/Resolved]

NARRATIVE: CASE EVENT DATE: 20190908
